FAERS Safety Report 25055561 (Version 1)
Quarter: 2025Q1

REPORT INFORMATION
  Report Type: Spontaneous
  Country: JP (occurrence: JP)
  Receive Date: 20250308
  Receipt Date: 20250308
  Transmission Date: 20250408
  Serious: Yes (Other)
  Sender: ROCHE
  Company Number: JP-CHUGAI-2024045191

PATIENT
  Age: 8 Decade
  Sex: Female

DRUGS (2)
  1. GAZYVA [Suspect]
     Active Substance: OBINUTUZUMAB
     Indication: Follicular lymphoma recurrent
     Route: 042
     Dates: start: 202407, end: 202412
  2. BENDAMUSTINE HYDROCHLORIDE [Concomitant]
     Active Substance: BENDAMUSTINE HYDROCHLORIDE
     Indication: Follicular lymphoma recurrent
     Route: 042

REACTIONS (3)
  - Coronavirus infection [Recovered/Resolved]
  - Lymphocyte count decreased [Unknown]
  - Neutrophil count decreased [Not Recovered/Not Resolved]

NARRATIVE: CASE EVENT DATE: 20241201
